FAERS Safety Report 19010788 (Version 2)
Quarter: 2021Q1

REPORT INFORMATION
  Report Type: Spontaneous
  Country: GB (occurrence: GB)
  Receive Date: 20210316
  Receipt Date: 20210317
  Transmission Date: 20210420
  Serious: Yes (Life-Threatening, Other)
  Sender: FDA-Public Use
  Company Number: NVSC2021GB051500

PATIENT
  Sex: Female

DRUGS (3)
  1. TERBUTALINE SULFATE. [Suspect]
     Active Substance: TERBUTALINE SULFATE
     Indication: PRODUCT USED FOR UNKNOWN INDICATION
     Dosage: UNK
     Route: 065
  2. PARACETAMOL [Suspect]
     Active Substance: ACETAMINOPHEN
     Indication: PRODUCT USED FOR UNKNOWN INDICATION
     Dosage: UNK
     Route: 065
  3. EPIPEN [Suspect]
     Active Substance: EPINEPHRINE
     Indication: PRODUCT USED FOR UNKNOWN INDICATION
     Dosage: INTRODUCER, SYRINGE NEEDLE
     Route: 065

REACTIONS (2)
  - Anaphylactic reaction [Unknown]
  - Jaundice [Unknown]
